FAERS Safety Report 9313324 (Version 2)
Quarter: 2013Q3

REPORT INFORMATION
  Report Type: Report from Study
  Country: US (occurrence: US)
  Receive Date: 20130528
  Receipt Date: 20130828
  Transmission Date: 20140515
  Serious: No
  Sender: FDA-Public Use
  Company Number: US-ABBOTT-13P-163-1066542-00

PATIENT
  Age: 42 Year
  Sex: Male
  Weight: 123.49 kg

DRUGS (6)
  1. ANDROGEL [Suspect]
     Indication: BLOOD TESTOSTERONE DECREASED
     Dosage: TWO PUMP ACTUATIONS
     Dates: start: 20121228
  2. ANDROGEL [Suspect]
     Dosage: 4 PUMPS
  3. ANDROGEL [Suspect]
     Dosage: 6 PUMPS
     Dates: start: 201302, end: 20130401
  4. TESTOSTERONE [Suspect]
     Indication: PRODUCT USED FOR UNKNOWN INDICATION
     Route: 050
  5. ALLOPURINOL [Concomitant]
     Indication: GOUT
  6. LISINOPRIL [Concomitant]
     Indication: HYPERTENSION

REACTIONS (6)
  - Feeling abnormal [Not Recovered/Not Resolved]
  - Incorrect dose administered [Unknown]
  - Libido decreased [Not Recovered/Not Resolved]
  - Blood testosterone decreased [Recovered/Resolved]
  - Blood testosterone increased [Unknown]
  - Drug ineffective [Unknown]
